FAERS Safety Report 5813920-8 (Version None)
Quarter: 2008Q3

REPORT INFORMATION
  Report Type: 
  Country: None (occurrence: None)
  Receive Date: 20080717
  Receipt Date: 20080711
  Transmission Date: 20090109
  Serious: Yes (Hospitalization)
  Sender: FDA-Public Use
  Company Number: FR-WYE-G01850508

PATIENT
  Sex: Male

DRUGS (13)
  1. RAPAMUNE [Suspect]
     Indication: PROPHYLAXIS AGAINST TRANSPLANT REJECTION
     Dosage: 1 TO 2 MG TOTAL DAILY
     Route: 048
     Dates: start: 20070328, end: 20071219
  2. REBETOL [Concomitant]
     Dosage: 600 MG TOTAL DAILY
     Route: 048
  3. DELURSAN [Concomitant]
     Dosage: 500 MG TOTAL DAILY
     Route: 048
  4. HYDROCORTISONE SODIUM SUCCINATE [Concomitant]
     Dosage: 30 MG TOTAL DAILY
  5. EUPRESSYL [Concomitant]
     Route: 048
  6. IMMUNOGLOBULIN ANTIHEPATITIS B [Concomitant]
     Indication: ANTIVIRAL PROPHYLAXIS
     Dosage: UNKNOWN
  7. ATACAND [Concomitant]
     Route: 048
  8. ASPEGIC 325 [Concomitant]
  9. MOPRAL [Concomitant]
     Route: 048
  10. INSULIN [Concomitant]
     Indication: TYPE 1 DIABETES MELLITUS
     Dosage: UNKNOWN
  11. ZEFFIX [Concomitant]
     Indication: ANTIVIRAL PROPHYLAXIS
     Dosage: UNKNOWN
     Route: 048
  12. NEORAL [Concomitant]
     Indication: PROPHYLAXIS AGAINST TRANSPLANT REJECTION
     Route: 048
     Dates: start: 20070328, end: 20071121
  13. XATRAL [Concomitant]
     Route: 048

REACTIONS (7)
  - CONDITION AGGRAVATED [None]
  - FACE OEDEMA [None]
  - GENITAL PAIN [None]
  - LYMPHOEDEMA [None]
  - OEDEMA GENITAL [None]
  - OEDEMA PERIPHERAL [None]
  - WEIGHT FLUCTUATION [None]
